FAERS Safety Report 8484073-5 (Version None)
Quarter: 2012Q3

REPORT INFORMATION
  Report Type: 
  Country: None (occurrence: None)
  Receive Date: 20120703
  Receipt Date: 20120627
  Transmission Date: 20120928
  Serious: Yes (Death, Other)
  Sender: FDA-Public Use
  Company Number: JP-ELI_LILLY_AND_COMPANY-JP201206008978

PATIENT
  Age: 38 Year
  Sex: Male

DRUGS (3)
  1. GEMCITABINE HYDROCHLORIDE [Suspect]
     Indication: TESTICULAR GERM CELL CANCER
  2. PACLITAXEL [Concomitant]
     Indication: TESTICULAR GERM CELL CANCER
  3. NEDAPLATIN [Concomitant]
     Indication: TESTICULAR GERM CELL CANCER

REACTIONS (3)
  - PNEUMONIA [None]
  - MYELODYSPLASTIC SYNDROME [None]
  - OFF LABEL USE [None]
